FAERS Safety Report 10656302 (Version 2)
Quarter: 2014Q4

REPORT INFORMATION
  Report Type: Spontaneous
  Country: IT (occurrence: IT)
  Receive Date: 20141216
  Receipt Date: 20141229
  Transmission Date: 20150529
  Serious: Yes (Other)
  Sender: FDA-Public Use
  Company Number: IT-WATSON-2014-26776

PATIENT
  Age: 35 Year
  Sex: Male

DRUGS (1)
  1. LORAZEPAM (UNKNOWN) [Suspect]
     Active Substance: LORAZEPAM
     Indication: DRUG ABUSE
     Dosage: 50 MG, TOTAL
     Route: 048
     Dates: start: 20141028, end: 20141028

REACTIONS (3)
  - Sopor [Recovering/Resolving]
  - Intentional self-injury [Recovering/Resolving]
  - Drug abuse [Recovering/Resolving]

NARRATIVE: CASE EVENT DATE: 20141028
